FAERS Safety Report 19740476 (Version 1)
Quarter: 2021Q3

REPORT INFORMATION
  Report Type: Spontaneous
  Country: DE (occurrence: DE)
  Receive Date: 20210824
  Receipt Date: 20210824
  Transmission Date: 20211014
  Serious: Yes (Hospitalization, Other)
  Sender: FDA-Public Use
  Company Number: DE-ACCORD-235958

PATIENT
  Age: 49 Year
  Sex: Female
  Weight: 62 kg

DRUGS (7)
  1. FLUOROURACIL. [Suspect]
     Active Substance: FLUOROURACIL
     Indication: PRODUCT USED FOR UNKNOWN INDICATION
     Dosage: ACCORDING TO THE SCHEME
  2. LORAZEPAM. [Concomitant]
     Active Substance: LORAZEPAM
     Dosage: 1 MG, AS NEEDED, TABLETS
     Route: 048
  3. OXALIPLATIN. [Suspect]
     Active Substance: OXALIPLATIN
     Indication: PRODUCT USED FOR UNKNOWN INDICATION
     Dosage: ACCORDING TO THE SCHEME
  4. AMLODIPINE/OLMESARTAN [Concomitant]
     Active Substance: AMLODIPINE BESYLATE\OLMESARTAN MEDOXOMIL
     Dosage: 5 20 MG, 1?0?0?0, TABLETS
     Route: 048
  5. CALCIUM FOLINATE/FOLINIC ACID/SODIUM FOLINATE [Concomitant]
     Active Substance: LEUCOVORIN
     Dosage: ACCORDING TO THE SCHEME
  6. METAMIZOLE SODIUM [Concomitant]
     Active Substance: METAMIZOLE SODIUM
     Dosage: 500 MG, AS NEEDED, TABLETS
     Route: 048
  7. OPIPRAMOL/OPIPRAMOL HYDROCHLORIDE [Concomitant]
     Active Substance: OPIPRAMOL\OPIPRAMOL HYDROCHLORIDE
     Dosage: 50 MG, 1?0?1?0, TABLETS
     Route: 048

REACTIONS (3)
  - Haematochezia [Unknown]
  - Diarrhoea [Unknown]
  - Pain [Unknown]
